FAERS Safety Report 9057109 (Version 1)
Quarter: 2013Q1

REPORT INFORMATION
  Report Type: Report from Study
  Country: US (occurrence: US)
  Receive Date: 20130131
  Receipt Date: 20130131
  Transmission Date: 20140127
  Serious: Yes (Other)
  Sender: FDA-Public Use
  Company Number: US-ABBOTT-12P-163-0995306-00

PATIENT
  Age: 65 Year
  Sex: Female

DRUGS (8)
  1. HUMIRA [Suspect]
     Indication: RHEUMATOID ARTHRITIS
     Dates: start: 2009, end: 20121014
  2. KEFLEX [Suspect]
  3. UNKNOWN MEDICATION [Suspect]
     Dosage: INCREASED FROM 600MG TO 900MG DAILY
  4. INDERAL [Concomitant]
     Indication: CARDIAC DISORDER
  5. ALPDRA [Concomitant]
     Indication: PRODUCT USED FOR UNKNOWN INDICATION
     Dosage: BEFORE BREAKFAST, LUNCH, AND DINNER
  6. BYETTA [Concomitant]
     Indication: PRODUCT USED FOR UNKNOWN INDICATION
  7. LANTUS [Concomitant]
     Indication: DIABETES MELLITUS
     Dosage: IN THE MORNING
  8. UNKNOWN BLOOD PRESSURE MEDICATION [Concomitant]
     Indication: PROPHYLAXIS

REACTIONS (8)
  - Ankle fracture [Recovering/Resolving]
  - Fall [Recovering/Resolving]
  - Impaired healing [Recovering/Resolving]
  - Incision site infection [Recovering/Resolving]
  - Incision site infection [Recovering/Resolving]
  - Tremor [Unknown]
  - Pruritus [Unknown]
  - Haemoglobin decreased [Unknown]
